FAERS Safety Report 15075266 (Version 1)
Quarter: 2018Q2

REPORT INFORMATION
  Report Type: Spontaneous
  Country: US (occurrence: US)
  Receive Date: 20180627
  Receipt Date: 20180627
  Transmission Date: 20180711
  Serious: Yes (Other)
  Sender: FDA-Public Use
  Company Number: US-SAOL THERAPEUTICS-2018SAO00129

PATIENT
  Sex: Female

DRUGS (3)
  1. BACLOFEN. [Suspect]
     Active Substance: BACLOFEN
     Dosage: 100 UNK, UNK
     Route: 037
  2. BACLOFEN. [Suspect]
     Active Substance: BACLOFEN
     Indication: MUSCLE SPASTICITY
     Dosage: 900 UNK, UNK
     Route: 037
     Dates: start: 2016
  3. BACLOFEN. [Suspect]
     Active Substance: BACLOFEN
     Dosage: 160 UNK, UNK
     Route: 037

REACTIONS (4)
  - Pain [Unknown]
  - Musculoskeletal stiffness [Unknown]
  - Device malfunction [Unknown]
  - Therapy non-responder [Unknown]

NARRATIVE: CASE EVENT DATE: 2016
